FAERS Safety Report 8824748 (Version 2)
Quarter: 2012Q4

REPORT INFORMATION
  Report Type: 
  Country: US (occurrence: US)
  Receive Date: 20121004
  Receipt Date: 20121004
  Transmission Date: 20130627
  Serious: Yes (Other)
  Sender: FDA-Public Use
  Company Number: US-JNJFOC-20110611826

PATIENT
  Age: 52 Year
  Sex: Male
  Weight: 124.74 kg

DRUGS (3)
  1. ZYRTEC [Suspect]
  2. ZYRTEC [Suspect]
     Indication: SEASONAL ALLERGY
     Dosage: for 2 weeks
     Dates: end: 20110603
  3. UNKNOWN MEDICATION [Concomitant]
     Indication: PRODUCT USED FOR UNKNOWN INDICATION
     Route: 065

REACTIONS (7)
  - Head injury [Unknown]
  - Loss of consciousness [Unknown]
  - Palpitations [Recovered/Resolved]
  - Balance disorder [Recovered/Resolved]
  - Abnormal behaviour [Recovered/Resolved]
  - Nonspecific reaction [Recovered/Resolved]
  - Dizziness [Recovered/Resolved]
